FAERS Safety Report 10922714 (Version 1)
Quarter: 2015Q1

REPORT INFORMATION
  Report Type: Spontaneous
  Country: JP (occurrence: JP)
  Receive Date: 20150317
  Receipt Date: 20150317
  Transmission Date: 20150721
  Serious: Yes (Hospitalization, Other)
  Sender: FDA-Public Use
  Company Number: JP-GLAXOSMITHKLINE-JP2015JPN029148

PATIENT
  Age: 90 Year
  Sex: Female
  Weight: 38 kg

DRUGS (8)
  1. TRERIEF [Concomitant]
     Active Substance: ZONISAMIDE
     Dosage: UNK
     Route: 048
     Dates: end: 20150212
  2. BONOTEO [Concomitant]
     Active Substance: MINODRONIC ACID
  3. SEDIEL [Concomitant]
     Active Substance: TANDOSPIRONE
  4. DOPS OD [Concomitant]
     Active Substance: DROXIDOPA
  5. LAMICTAL [Suspect]
     Active Substance: LAMOTRIGINE
     Dosage: 25 MG, QD
     Route: 048
     Dates: start: 20150108, end: 20150124
  6. MAGMITT [Concomitant]
     Active Substance: MAGNESIUM OXIDE
  7. MENESIT [Concomitant]
     Active Substance: CARBIDOPA\LEVODOPA
  8. LAMICTAL [Suspect]
     Active Substance: LAMOTRIGINE
     Indication: EPILEPSY
     Dosage: 25 MG, QOD
     Route: 048
     Dates: start: 20141224

REACTIONS (14)
  - Erythema multiforme [Recovered/Resolved]
  - Erythema [Recovering/Resolving]
  - Pyrexia [Recovering/Resolving]
  - Epidermal necrosis [Unknown]
  - Oral mucosal erythema [Recovering/Resolving]
  - Rash generalised [Recovered/Resolved]
  - Drug eruption [Recovering/Resolving]
  - Pruritus [Recovering/Resolving]
  - Erythema [Recovering/Resolving]
  - Body temperature increased [Recovering/Resolving]
  - Conjunctival hyperaemia [Recovering/Resolving]
  - Purpura [Recovering/Resolving]
  - Lip swelling [Recovering/Resolving]
  - Oral pain [Recovering/Resolving]

NARRATIVE: CASE EVENT DATE: 20150117
